FAERS Safety Report 6288741-5 (Version None)
Quarter: 2009Q3

REPORT INFORMATION
  Report Type: 
  Country: None (occurrence: None)
  Receive Date: 20090729
  Receipt Date: 20090721
  Transmission Date: 20100115
  Serious: Yes (Death, Hospitalization)
  Sender: FDA-Public Use
  Company Number: US-GILEAD-2009-0023244

PATIENT
  Sex: Female
  Weight: 95.34 kg

DRUGS (16)
  1. LETAIRIS [Suspect]
     Indication: PULMONARY ARTERIAL HYPERTENSION
     Route: 048
     Dates: start: 20081021, end: 20090623
  2. LETAIRIS [Suspect]
     Route: 048
     Dates: start: 20080429, end: 20081021
  3. REVATIO [Concomitant]
  4. ROPINIROLE HYDROCHLORIDE [Concomitant]
  5. AZATHIOPRINE [Concomitant]
  6. LASIX [Concomitant]
  7. SYNTHROID [Concomitant]
  8. DIOVAN [Concomitant]
  9. METOPROLOL [Concomitant]
  10. GLYBURIDE [Concomitant]
  11. METFORMIN [Concomitant]
  12. NEXIUM [Concomitant]
  13. FISH OIL [Concomitant]
  14. ASPIRIN [Concomitant]
  15. MULTI-VITAMINS [Concomitant]
  16. CALCIUM +D [Concomitant]

REACTIONS (4)
  - AUTOIMMUNE DISORDER [None]
  - PULMONARY FIBROSIS [None]
  - PULMONARY HAEMORRHAGE [None]
  - RESPIRATORY FAILURE [None]
